FAERS Safety Report 15657657 (Version 1)
Quarter: 2018Q4

REPORT INFORMATION
  Report Type: Spontaneous
  Country: US (occurrence: US)
  Receive Date: 20181126
  Receipt Date: 20181126
  Transmission Date: 20190205
  Serious: Yes (Hospitalization)
  Sender: FDA-Public Use
  Company Number: US-NOVOPROD-616453

PATIENT
  Sex: Female

DRUGS (2)
  1. CEPHALEXIN                         /00145501/ [Suspect]
     Active Substance: CEPHALEXIN
     Indication: GOUT
     Dosage: 500 MG, QID
     Route: 048
     Dates: start: 201807, end: 201807
  2. NOVOLOG MIX 70/30 [Suspect]
     Active Substance: INSULIN ASPART
     Indication: TYPE 2 DIABETES MELLITUS
     Dosage: 46 UNITS IN THE AM AND 44 UNITS IN THE PM
     Route: 058
     Dates: start: 2017

REACTIONS (3)
  - Blood glucose decreased [Recovered/Resolved]
  - Drug hypersensitivity [Recovered/Resolved]
  - Gout [Not Recovered/Not Resolved]

NARRATIVE: CASE EVENT DATE: 20180705
